FAERS Safety Report 25663719 (Version 1)
Quarter: 2025Q3

REPORT INFORMATION
  Report Type: Spontaneous
  Country: JP (occurrence: JP)
  Receive Date: 20250811
  Receipt Date: 20250811
  Transmission Date: 20251020
  Serious: Yes (Death, Other)
  Sender: EXELA PHARMA SCIENCES
  Company Number: JP-EXELAPHARMA-2025EXLA00148

PATIENT
  Age: 83 Year
  Sex: Male

DRUGS (11)
  1. GANCICLOVIR [Suspect]
     Active Substance: GANCICLOVIR
     Indication: Cytomegalovirus colitis
     Dosage: DAILY
  2. METHYLPREDNISOLONE [Concomitant]
     Active Substance: METHYLPREDNISOLONE
     Indication: Liver injury
     Dosage: DAILY
  3. TENOFOVIR [Concomitant]
     Active Substance: TENOFOVIR
     Indication: Liver injury
     Dosage: DAILY
  4. EDOXABAN [Concomitant]
     Active Substance: EDOXABAN
     Indication: Pulmonary embolism
  5. HYDROCORTISONE [Concomitant]
     Active Substance: HYDROCORTISONE
     Indication: Hypovolaemic shock
  6. HYDROCORTISONE [Concomitant]
     Active Substance: HYDROCORTISONE
     Indication: Septic shock
  7. Blood transfusion (4 units of packed red blood cells) [Concomitant]
     Indication: Hypovolaemic shock
  8. Blood transfusion (4 units of packed red blood cells) [Concomitant]
     Indication: Septic shock
  9. CEFTAZIDIME [Concomitant]
     Active Substance: CEFTAZIDIME
     Route: 042
  10. VANCOMYCIN [Concomitant]
     Active Substance: VANCOMYCIN
     Route: 042
  11. MEROPENEM [Concomitant]
     Active Substance: MEROPENEM

REACTIONS (4)
  - Drug ineffective for unapproved indication [Fatal]
  - Condition aggravated [Fatal]
  - Diverticular perforation [Not Recovered/Not Resolved]
  - Hepatic failure [Fatal]
